FAERS Safety Report 8323070-7 (Version None)
Quarter: 2012Q2

REPORT INFORMATION
  Report Type: 
  Country: None (occurrence: None)
  Receive Date: 20120430
  Receipt Date: 20120423
  Transmission Date: 20120825
  Serious: Yes (Other)
  Sender: FDA-Public Use
  Company Number: US-US-EMD SERONO, INC.-7009847

PATIENT
  Sex: Female

DRUGS (4)
  1. REBIF [Suspect]
     Indication: MULTIPLE SCLEROSIS
     Dates: start: 20040101, end: 20060701
  2. REBIF [Suspect]
     Dates: start: 20091114, end: 20100628
  3. REBIF [Suspect]
     Route: 058
     Dates: start: 20100805
  4. REBIF [Suspect]
     Dates: end: 20090316

REACTIONS (2)
  - MULTIPLE SCLEROSIS [None]
  - ANAPHYLACTIC SHOCK [None]
